FAERS Safety Report 13697467 (Version 1)
Quarter: 2017Q2

REPORT INFORMATION
  Report Type: Spontaneous
  Country: US (occurrence: US)
  Receive Date: 20170628
  Receipt Date: 20170628
  Transmission Date: 20170830
  Serious: Yes (Other)
  Sender: FDA-Public Use
  Company Number: None

PATIENT
  Age: 50 Year
  Sex: Female
  Weight: 138.35 kg

DRUGS (1)
  1. BUPROPION 300MG ACTAVIS [Suspect]
     Active Substance: BUPROPION
     Indication: DEPRESSION
     Route: 048
     Dates: start: 201612

REACTIONS (3)
  - Drug effect decreased [None]
  - Agitation [None]
  - Product substitution issue [None]

NARRATIVE: CASE EVENT DATE: 201612
